FAERS Safety Report 18325531 (Version 1)
Quarter: 2020Q3

REPORT INFORMATION
  Report Type: Spontaneous
  Country: US (occurrence: US)
  Receive Date: 20200929
  Receipt Date: 20200929
  Transmission Date: 20201103
  Serious: Yes (Hospitalization, Other)
  Sender: FDA-Public Use
  Company Number: US-ELI_LILLY_AND_COMPANY-US202009008203

PATIENT
  Sex: Male

DRUGS (1)
  1. HUMALOG [Suspect]
     Active Substance: INSULIN LISPRO
     Indication: TYPE 2 DIABETES MELLITUS
     Dosage: 100 U, UNKNOWN
     Route: 058
     Dates: start: 2020

REACTIONS (2)
  - Macular hole [Unknown]
  - Vascular endothelial growth factor overexpression [Not Recovered/Not Resolved]

NARRATIVE: CASE EVENT DATE: 1996
